FAERS Safety Report 5050778-1 (Version None)
Quarter: 2006Q3

REPORT INFORMATION
  Report Type: 
  Country: None (occurrence: None)
  Receive Date: 20060710
  Receipt Date: 20060627
  Transmission Date: 20061208
  Serious: Yes (Hospitalization, Other)
  Sender: FDA-Public Use
  Company Number: 2006063774

PATIENT
  Age: 52 Year
  Sex: Female

DRUGS (1)
  1. LIPITOR [Suspect]
     Indication: HYPERCHOLESTEROLAEMIA
     Dosage: 5-10 MG (1 IN 1 D), ORAL
     Route: 048
     Dates: start: 20021120, end: 20060506

REACTIONS (4)
  - AUTOIMMUNE THYROIDITIS [None]
  - DIABETES MELLITUS [None]
  - HYPERTHYROIDISM [None]
  - WEIGHT DECREASED [None]
